FAERS Safety Report 5283777-5 (Version None)
Quarter: 2007Q1

REPORT INFORMATION
  Report Type: 
  Country: None (occurrence: None)
  Receive Date: 20061226
  Receipt Date: 20060421
  Transmission Date: 20070707
  Serious: Yes (Other)
  Sender: FDA-Public Use
  Company Number: 2006S1000101

PATIENT
  Age: 40 Year
  Sex: Female

DRUGS (2)
  1. ACITRETIN [Suspect]
     Indication: PSORIASIS
     Dosage: 35 MG; QD; PO
     Route: 048
  2. LOCAL TREATMENT FOR PSORIASIS NOS [Concomitant]

REACTIONS (3)
  - ANXIETY [None]
  - MAJOR DEPRESSION [None]
  - SUICIDAL IDEATION [None]
